FAERS Safety Report 13407366 (Version 3)
Quarter: 2017Q2

REPORT INFORMATION
  Report Type: Spontaneous
  Country: US (occurrence: US)
  Receive Date: 20170405
  Receipt Date: 20170509
  Transmission Date: 20170830
  Serious: Yes (Hospitalization)
  Sender: FDA-Public Use
  Company Number: US-B.I. PHARMACEUTICALS,INC./RIDGEFIELD-2017-BI-018023

PATIENT
  Age: 65 Year
  Sex: Male

DRUGS (33)
  1. OFEV [Suspect]
     Active Substance: NINTEDANIB
     Indication: IDIOPATHIC PULMONARY FIBROSIS
     Dosage: DAILY DOSE: LAST DOSE PRIOR TO SAE 08-AUG-2016
     Route: 048
     Dates: start: 20160401, end: 20160407
  2. ALBUTEROL. [Concomitant]
     Active Substance: ALBUTEROL
     Dosage: DAILY DOSE: 4 PUFF
     Route: 048
     Dates: start: 20160623, end: 20160623
  3. ALBUTEROL. [Concomitant]
     Active Substance: ALBUTEROL
     Dosage: DAILY DOSE: 4 PUFF?ADMINISTERED AS PART OF THE CLINICAL PROTOCOL FOR WEEK 24
     Route: 048
     Dates: start: 20160913, end: 20160913
  4. ALBUTEROL. [Concomitant]
     Active Substance: ALBUTEROL
     Indication: PRODUCT USED FOR UNKNOWN INDICATION
     Dosage: DAILY DOSE: 3 PUFF ?ONE TIME FOR THE PURPOSE OF PFT TESTING.
     Route: 048
     Dates: start: 20160310, end: 20160310
  5. ALBUTEROL. [Concomitant]
     Active Substance: ALBUTEROL
     Dosage: DAILY DOSE: 3 PUFF ?ONE TIME FOR THE PURPOSE OF THE PFT TESTING PERFORMED
     Route: 048
     Dates: start: 20160331, end: 20160331
  6. ZOFRAN [Concomitant]
     Active Substance: ONDANSETRON HYDROCHLORIDE
     Indication: NAUSEA
     Dosage: DAILY DOSE: 08 MG AS NEEDED
     Route: 048
     Dates: start: 20160521, end: 20161014
  7. ZOFRAN [Concomitant]
     Active Substance: ONDANSETRON HYDROCHLORIDE
     Indication: DIARRHOEA
  8. METFORMIN HYDROCHLORIDE. [Concomitant]
     Active Substance: METFORMIN HYDROCHLORIDE
     Indication: PRODUCT USED FOR UNKNOWN INDICATION
     Route: 048
     Dates: start: 20140921, end: 20160729
  9. LOPERAMIDE [Concomitant]
     Active Substance: LOPERAMIDE
     Indication: DIARRHOEA
     Dosage: DAILY DOSE: 2 MG AS REQUIRED
     Route: 048
     Dates: start: 20160402, end: 20161014
  10. VICKS NYQUIL [Concomitant]
     Active Substance: ACETAMINOPHEN\DEXTROMETHORPHAN HYDROBROMIDE\DOXYLAMINE SUCCINATE
     Indication: UPPER RESPIRATORY TRACT INFECTION
  11. ONDANSETRON [Concomitant]
     Active Substance: ONDANSETRON
     Indication: DIARRHOEA
     Dosage: DAILY DOSE: 04 MG AS NEEDED
     Route: 048
     Dates: start: 20160519, end: 20161014
  12. METFORMIN HYDROCHLORIDE. [Concomitant]
     Active Substance: METFORMIN HYDROCHLORIDE
     Route: 048
     Dates: start: 20160730
  13. DAYQUIL COUGH [Concomitant]
     Indication: COUGH
     Dosage: 1 TABLE SPOON BID TO TID AS NEEDED
     Route: 048
     Dates: start: 20160420, end: 20160422
  14. LIPITOR [Concomitant]
     Active Substance: ATORVASTATIN CALCIUM
     Indication: PRODUCT USED FOR UNKNOWN INDICATION
     Dates: start: 20140921
  15. PROTONIX [Concomitant]
     Active Substance: PANTOPRAZOLE SODIUM
     Indication: PRODUCT USED FOR UNKNOWN INDICATION
     Dates: start: 20140921
  16. ROBITUSSEN [Concomitant]
     Indication: PRODUCT USED FOR UNKNOWN INDICATION
     Route: 065
  17. LOPERAMIDE [Concomitant]
     Active Substance: LOPERAMIDE
     Indication: NAUSEA
  18. CHLORPHENIRAMINE MALEATE. [Concomitant]
     Active Substance: CHLORPHENIRAMINE MALEATE
     Indication: PRODUCT USED FOR UNKNOWN INDICATION
     Dosage: TAKEN PRIOR TO STUDY DRUG EVERY 6 HOURS OR AS NEEDED. PARTICIPANT TYPICALLY TAKES BEFORE BEDTIME (4
     Route: 048
     Dates: start: 20160520
  19. MONTELUKAST SODIUM. [Concomitant]
     Active Substance: MONTELUKAST SODIUM
     Indication: PRODUCT USED FOR UNKNOWN INDICATION
     Route: 048
     Dates: start: 20160521, end: 20160616
  20. VENTOLIN HFA [Concomitant]
     Active Substance: ALBUTEROL SULFATE
     Indication: PRODUCT USED FOR UNKNOWN INDICATION
     Dosage: 2 PUFFS IN THE  MORNING AND EVERY 4 HOURS AS NEEDED.
     Dates: start: 20160310
  21. ZIRGAN [Concomitant]
     Active Substance: GANCICLOVIR
     Indication: PRODUCT USED FOR UNKNOWN INDICATION
     Dosage: 15%
     Dates: start: 20140921
  22. OFEV [Suspect]
     Active Substance: NINTEDANIB
     Dosage: DAILY DOSE: LAST DOSE PRIOR TO SAE 08/AUG/2016
     Route: 048
     Dates: start: 20160408, end: 20160414
  23. OFEV [Suspect]
     Active Substance: NINTEDANIB
     Dosage: DAILY DOSE: LAST DOSE PRIOR TO SAE 08/AUG/2016
     Route: 048
     Dates: start: 20160415
  24. PIRFENIDONE [Suspect]
     Active Substance: PIRFENIDONE
     Indication: IDIOPATHIC PULMONARY FIBROSIS
     Dosage: DAILY DOSE: LAST DOSE BEFORE SAE: 08 AUG 2016
     Route: 048
     Dates: start: 20150113, end: 20160331
  25. ACTOS [Concomitant]
     Active Substance: PIOGLITAZONE HYDROCHLORIDE
     Indication: PRODUCT USED FOR UNKNOWN INDICATION
     Dates: start: 20140921
  26. DAYQUIL COUGH [Concomitant]
     Indication: UPPER RESPIRATORY TRACT INFECTION
  27. LEVOFLOXACIN. [Concomitant]
     Active Substance: LEVOFLOXACIN
     Indication: UPPER RESPIRATORY TRACT INFECTION
     Route: 048
     Dates: start: 20160701, end: 20160707
  28. PREDNISONE. [Concomitant]
     Active Substance: PREDNISONE
     Indication: UPPER RESPIRATORY TRACT INFECTION
     Route: 048
     Dates: start: 20160701, end: 20160705
  29. PIRFENIDONE [Suspect]
     Active Substance: PIRFENIDONE
     Dosage: DAILY DOSE: LAST DOSE BEFORE SAE: 08 AUG 2016
     Route: 048
     Dates: start: 20160331
  30. ALLEGRA [Concomitant]
     Active Substance: FEXOFENADINE HYDROCHLORIDE
     Indication: PRODUCT USED FOR UNKNOWN INDICATION
     Dates: start: 20150727
  31. LOTEMAX [Concomitant]
     Active Substance: LOTEPREDNOL ETABONATE
     Indication: PRODUCT USED FOR UNKNOWN INDICATION
     Dosage: DAILY DOSE AND DOSE PER APPLICATION:  DROP TO THE RIGHT EYE
     Route: 050
     Dates: start: 20140921
  32. VICKS NYQUIL [Concomitant]
     Active Substance: ACETAMINOPHEN\DEXTROMETHORPHAN HYDROBROMIDE\DOXYLAMINE SUCCINATE
     Indication: COUGH
     Dosage: 1 TABLE SPOON, AS NEEDED BEFORE BED
     Route: 048
     Dates: start: 20160419
  33. LEVOFLOXACIN. [Concomitant]
     Active Substance: LEVOFLOXACIN
     Indication: COUGH
     Route: 048
     Dates: start: 20160422, end: 20160429

REACTIONS (2)
  - Concussion [Recovered/Resolved]
  - Transient ischaemic attack [Recovered/Resolved]

NARRATIVE: CASE EVENT DATE: 20160808
